FAERS Safety Report 6608358-X (Version None)
Quarter: 2010Q1

REPORT INFORMATION
  Report Type: 
  Country: None (occurrence: None)
  Receive Date: 20100225
  Receipt Date: 20100225
  Transmission Date: 20100710
  Serious: Yes (Other)
  Sender: FDA-Public Use
  Company Number: None

PATIENT
  Age: 36 Year
  Sex: Female
  Weight: 87.7 kg

DRUGS (1)
  1. LOESTRIN 24 FE [Suspect]
     Indication: UTERINE LEIOMYOMA
     Dosage: 1 PILL A DAY
     Dates: start: 20090701, end: 20091101

REACTIONS (4)
  - MUSCLE SPASMS [None]
  - MYALGIA [None]
  - PALPITATIONS [None]
  - RENAL IMPAIRMENT [None]
